APPROVED DRUG PRODUCT: CARBOPLATIN
Active Ingredient: CARBOPLATIN
Strength: 50MG/VIAL
Dosage Form/Route: INJECTABLE;INJECTION
Application: A076959 | Product #001
Applicant: SANDOZ INC
Approved: Mar 18, 2005 | RLD: No | RS: No | Type: DISCN